FAERS Safety Report 22023417 (Version 5)
Quarter: 2023Q1

REPORT INFORMATION
  Report Type: Spontaneous
  Country: US (occurrence: US)
  Receive Date: 20230223
  Receipt Date: 20230329
  Transmission Date: 20230417
  Serious: Yes (Other)
  Sender: FDA-Public Use
  Company Number: US-SA-SAC20230222000267

PATIENT
  Sex: Female

DRUGS (1)
  1. AUBAGIO [Suspect]
     Active Substance: TERIFLUNOMIDE
     Indication: Multiple sclerosis
     Dosage: 14 MG, QD
     Route: 048
     Dates: start: 20190904

REACTIONS (6)
  - Renal impairment [Unknown]
  - Coeliac disease [Unknown]
  - Serotonin syndrome [Unknown]
  - Fall [Unknown]
  - Mobility decreased [Unknown]
  - Feeling abnormal [Unknown]
